FAERS Safety Report 13206116 (Version 1)
Quarter: 2017Q1

REPORT INFORMATION
  Report Type: Spontaneous
  Country: US (occurrence: US)
  Receive Date: 20170209
  Receipt Date: 20170209
  Transmission Date: 20170428
  Serious: Yes (Hospitalization, Other)
  Sender: FDA-Public Use
  Company Number: US-JNJFOC-20170208021

PATIENT
  Sex: Male

DRUGS (1)
  1. IMBRUVICA [Suspect]
     Active Substance: IBRUTINIB
     Indication: CHRONIC LYMPHOCYTIC LEUKAEMIA
     Route: 065

REACTIONS (7)
  - Dehydration [Unknown]
  - Epistaxis [Unknown]
  - Pituitary tumour benign [Unknown]
  - Headache [Unknown]
  - Nausea [Unknown]
  - Meningioma [Unknown]
  - Vomiting [Unknown]

NARRATIVE: CASE EVENT DATE: 20170112
